FAERS Safety Report 8822410 (Version 1)
Quarter: 2012Q4

REPORT INFORMATION
  Report Type: 
  Country: JP (occurrence: JP)
  Receive Date: 20121003
  Receipt Date: 20121003
  Transmission Date: 20130627
  Serious: Yes (Other)
  Sender: FDA-Public Use
  Company Number: JP-JNJFOC-20120910059

PATIENT
  Age: 60 Year
  Sex: Female

DRUGS (2)
  1. DUROTEP MT [Suspect]
     Indication: PAIN
     Route: 062
  2. LYRICA [Suspect]
     Indication: PAIN
     Route: 048

REACTIONS (1)
  - Delirium [Recovered/Resolved]
